FAERS Safety Report 6238880-X (Version None)
Quarter: 2009Q2

REPORT INFORMATION
  Report Type: 
  Country: None (occurrence: None)
  Receive Date: 20090617
  Receipt Date: 20090617
  Transmission Date: 20091009
  Serious: Yes (Life-Threatening, Other)
  Sender: FDA-Public Use
  Company Number: None

PATIENT
  Age: 13 Year
  Sex: Female
  Weight: 56.6996 kg

DRUGS (2)
  1. SINGULAIR [Suspect]
     Indication: ASTHMA
     Dosage: 10 MH ONCE PER DAY PO
     Route: 048
     Dates: start: 20080810, end: 20090614
  2. SINGULAIR [Suspect]
     Indication: MULTIPLE ALLERGIES
     Dosage: 10 MH ONCE PER DAY PO
     Route: 048
     Dates: start: 20080810, end: 20090614

REACTIONS (2)
  - DEPRESSION [None]
  - SUICIDAL IDEATION [None]
